FAERS Safety Report 10676694 (Version 1)
Quarter: 2014Q4

REPORT INFORMATION
  Report Type: Spontaneous
  Country: US (occurrence: None)
  Receive Date: 20141223
  Receipt Date: 20141223
  Transmission Date: 20150529
  Serious: Yes (Other)
  Sender: FDA-Public Use
  Company Number: None

PATIENT
  Age: 39 Year
  Sex: Female
  Weight: 74.84 kg

DRUGS (3)
  1. PREDNISONE 20MG [Suspect]
     Active Substance: PREDNISONE
     Indication: BRONCHITIS
     Dosage: 2 PILLS
     Route: 048
     Dates: start: 20140721, end: 20140725
  2. PREDNISONE 20MG [Suspect]
     Active Substance: PREDNISONE
     Indication: INFLUENZA
     Dosage: 2 PILLS
     Route: 048
     Dates: start: 20140721, end: 20140725
  3. PREDNISONE 20MG [Suspect]
     Active Substance: PREDNISONE
     Indication: NASOPHARYNGITIS
     Dosage: 2 PILLS
     Route: 048
     Dates: start: 20140721, end: 20140725

REACTIONS (1)
  - Cataract [None]

NARRATIVE: CASE EVENT DATE: 20141218
